FAERS Safety Report 12825332 (Version 1)
Quarter: 2016Q4

REPORT INFORMATION
  Report Type: Spontaneous
  Country: DE (occurrence: DE)
  Receive Date: 20161007
  Receipt Date: 20161007
  Transmission Date: 20170207
  Serious: Yes (Death, Hospitalization, Other)
  Sender: FDA-Public Use
  Company Number: DE-MYLANLABS-2016M1043007

PATIENT

DRUGS (2)
  1. CISPLATIN. [Suspect]
     Active Substance: CISPLATIN
     Indication: METASTASES TO CENTRAL NERVOUS SYSTEM
     Dosage: 75 MG/M2 KOF 100%, ONE COURSE
     Route: 065
  2. ETOPOSIDE. [Suspect]
     Active Substance: ETOPOSIDE
     Indication: METASTASES TO CENTRAL NERVOUS SYSTEM
     Dosage: 100 MG/M2 KOF 100%, ONE COURSE
     Route: 065

REACTIONS (5)
  - Cytomegalovirus infection [Fatal]
  - Coma [Fatal]
  - Thrombocytopenia [Unknown]
  - Disorientation [Unknown]
  - Epilepsy [Fatal]
